FAERS Safety Report 5141125-5 (Version None)
Quarter: 2006Q4

REPORT INFORMATION
  Report Type: 
  Country: None (occurrence: None)
  Receive Date: 20061101
  Receipt Date: 20060718
  Transmission Date: 20070319
  Serious: Yes (Death, Life-Threatening, Hospitalization)
  Sender: FDA-Public Use
  Company Number: FR-BAYER-200610670BFR

PATIENT
  Age: 72 Year
  Sex: Male
  Weight: 75 kg

DRUGS (4)
  1. NEXAVAR [Suspect]
     Indication: METASTATIC RENAL CELL CARCINOMA
     Dosage: TOTAL DAILY DOSE: 800 MG  UNIT DOSE: 400 MG
     Route: 048
     Dates: start: 20060614, end: 20060621
  2. ANDROCUR [Concomitant]
     Indication: UNEVALUABLE EVENT
     Route: 048
     Dates: start: 20040101
  3. ASPIRIN [Concomitant]
     Indication: UNEVALUABLE EVENT
     Dosage: UNIT DOSE: 75 MG
     Route: 048
     Dates: start: 20060610
  4. PERINDOPRIL ERBUMINE [Concomitant]
     Indication: UNEVALUABLE EVENT
     Dosage: UNIT DOSE: 2 MG
     Route: 048
     Dates: start: 20060610

REACTIONS (4)
  - INTRAVENTRICULAR HAEMORRHAGE [None]
  - METASTASES TO CENTRAL NERVOUS SYSTEM [None]
  - PNEUMONIA [None]
  - RESPIRATORY FAILURE [None]
